FAERS Safety Report 6944510-1 (Version None)
Quarter: 2010Q3

REPORT INFORMATION
  Report Type: 
  Country: None (occurrence: None)
  Receive Date: 20100827
  Receipt Date: 20100816
  Transmission Date: 20110219
  Serious: Yes (Other)
  Sender: FDA-Public Use
  Company Number: US-PFIZER INC-2010103611

PATIENT
  Sex: Male
  Weight: 68.027 kg

DRUGS (2)
  1. ZOLOFT [Suspect]
     Indication: DEPRESSION
     Dosage: 50MG IN MORNING, 100MG AT BEDTIME
     Route: 048
     Dates: start: 20080101
  2. TRAZODONE [Concomitant]
     Dosage: UNK

REACTIONS (4)
  - ANXIETY [None]
  - CEREBROVASCULAR ACCIDENT [None]
  - HYPERTENSION [None]
  - PANIC ATTACK [None]
